FAERS Safety Report 6223222-6 (Version None)
Quarter: 2009Q2

REPORT INFORMATION
  Report Type: 
  Country: None (occurrence: None)
  Receive Date: 20090609
  Receipt Date: 20090528
  Transmission Date: 20091009
  Serious: Yes (Death, Hospitalization)
  Sender: FDA-Public Use
  Company Number: 2009AL003690

PATIENT
  Age: 93 Year
  Sex: Female

DRUGS (1)
  1. MELOXICAM [Suspect]
     Indication: MYALGIA
     Dosage: 7.5 MG; UNK; PO
     Route: 048
     Dates: end: 20090323

REACTIONS (3)
  - ANAEMIA [None]
  - CARDIAC ARREST [None]
  - HAEMATEMESIS [None]
